FAERS Safety Report 4370393-2 (Version None)
Quarter: 2004Q2

REPORT INFORMATION
  Report Type: 
  Country: None (occurrence: None)
  Receive Date: 20040603
  Receipt Date: 20040227
  Transmission Date: 20050107
  Serious: No
  Sender: FDA-Public Use
  Company Number: US-BRISTOL-MYERS SQUIBB COMPANY-12519864

PATIENT
  Sex: Female

DRUGS (1)
  1. ABILIFY [Suspect]
     Dosage: 15 MG/DAY THEN DOSE REDUCED TO 7.5 MG DAILY (DATE NOT PROVIDED)THEN D/C
     Route: 048

REACTIONS (3)
  - DYSKINESIA [None]
  - MUSCLE RIGIDITY [None]
  - PARKINSONIAN GAIT [None]
